FAERS Safety Report 9710454 (Version 1)
Quarter: 2013Q4

REPORT INFORMATION
  Report Type: Spontaneous
  Country: US (occurrence: US)
  Receive Date: 20131126
  Receipt Date: 20131126
  Transmission Date: 20140711
  Serious: No
  Sender: FDA-Public Use
  Company Number: US-BRISTOL-MYERS SQUIBB COMPANY-19421544

PATIENT
  Age: 45 Year
  Sex: Male
  Weight: 115.64 kg

DRUGS (4)
  1. BYDUREON [Suspect]
     Indication: TYPE 2 DIABETES MELLITUS
  2. NOVOLOG [Concomitant]
  3. INSULIN [Concomitant]
     Dosage: 30 UNITS
     Route: 058
  4. LEVEMIR [Concomitant]

REACTIONS (2)
  - Injection site swelling [Recovering/Resolving]
  - Injection site pruritus [Recovering/Resolving]
